FAERS Safety Report 24857813 (Version 3)
Quarter: 2025Q4

REPORT INFORMATION
  Report Type: Spontaneous
  Country: EU (occurrence: EU)
  Receive Date: 20250117
  Receipt Date: 20251016
  Transmission Date: 20260118
  Serious: Yes (Congenital Anomaly, Other)
  Sender: SANDOZ
  Company Number: EU-002147023-PHHY2018DK061711

PATIENT
  Sex: Male

DRUGS (9)
  1. METHYLPHENIDATE HYDROCHLORIDE [Suspect]
     Active Substance: METHYLPHENIDATE HYDROCHLORIDE
     Indication: Foetal exposure during pregnancy
     Dosage: 10 MG, QD
     Route: 064
     Dates: start: 20180409
  2. METHYLPHENIDATE HYDROCHLORIDE [Suspect]
     Active Substance: METHYLPHENIDATE HYDROCHLORIDE
     Indication: Attention deficit hyperactivity disorder
  3. METHYLPHENIDATE [Suspect]
     Active Substance: METHYLPHENIDATE
     Indication: Foetal exposure during pregnancy
     Dosage: 20 MG
     Route: 064
     Dates: start: 20180409
  4. METHYLPHENIDATE [Suspect]
     Active Substance: METHYLPHENIDATE
     Indication: Attention deficit hyperactivity disorder
  5. FLUOXETINE [Concomitant]
     Active Substance: FLUOXETINE HYDROCHLORIDE
     Indication: Foetal exposure during pregnancy
     Dosage: MATERNAL DOSE: 40 MG QD (STRENGTH: 20 MG), START DATE UNKNOWN BUT AT LEAST SINCE JUN2016
     Route: 064
  6. FLUOXETINE [Concomitant]
     Active Substance: FLUOXETINE HYDROCHLORIDE
     Indication: Depression
  7. Fluoxetinum [Concomitant]
     Indication: Depression
     Dosage: 40 MG, QD. START DATE UNKNOWN BUT AT LEAST SINCE JUN2016.
     Route: 064
  8. TAMIFLU [Concomitant]
     Active Substance: OSELTAMIVIR PHOSPHATE
     Indication: Foetal exposure during pregnancy
     Dosage: UNK
     Route: 064
  9. TAMIFLU [Concomitant]
     Active Substance: OSELTAMIVIR PHOSPHATE
     Indication: Influenza

REACTIONS (4)
  - Cerebral ventricle dilatation [Not Recovered/Not Resolved]
  - Ventricular septal defect [Not Recovered/Not Resolved]
  - Talipes [Not Recovered/Not Resolved]
  - Foetal exposure during pregnancy [Recovered/Resolved]

NARRATIVE: CASE EVENT DATE: 20180415
